FAERS Safety Report 6190428-4 (Version None)
Quarter: 2009Q2

REPORT INFORMATION
  Report Type: 
  Country: None (occurrence: None)
  Receive Date: 20090513
  Receipt Date: 20090513
  Transmission Date: 20091009
  Serious: No
  Sender: FDA-Public Use
  Company Number: None

PATIENT
  Sex: Male
  Weight: 104.3273 kg

DRUGS (1)
  1. ZOSYN [Suspect]
     Indication: MASTOIDITIS
     Dosage: 3.375GM Q6 IV
     Route: 042
     Dates: start: 20090420, end: 20090511

REACTIONS (1)
  - NEUTROPENIA [None]
